FAERS Safety Report 4270754-6 (Version None)
Quarter: 2004Q1

REPORT INFORMATION
  Report Type: 
  Country: None (occurrence: None)
  Receive Date: 20040113
  Receipt Date: 20031229
  Transmission Date: 20041129
  Serious: Yes (Other)
  Sender: FDA-Public Use
  Company Number: S03-USA-05404-01

PATIENT
  Age: 77 Year
  Sex: Female

DRUGS (8)
  1. LEXAPRO [Suspect]
     Indication: DEPRESSION
     Dosage: 10 MG QD PO
     Route: 048
     Dates: start: 20031210, end: 20031213
  2. DOBUTREX [Concomitant]
  3. LOVENOX [Concomitant]
  4. LOPRESSOR [Concomitant]
  5. ZESTRIL [Concomitant]
  6. DARVOCET [Concomitant]
  7. MORPHINE [Concomitant]
  8. PERCOCET [Concomitant]

REACTIONS (2)
  - ELECTROCARDIOGRAM QT PROLONGED [None]
  - VENTRICULAR TACHYCARDIA [None]
